FAERS Safety Report 9292878 (Version 1)
Quarter: 2013Q2

REPORT INFORMATION
  Report Type: Spontaneous
  Country: US (occurrence: US)
  Receive Date: 20130516
  Receipt Date: 20130516
  Transmission Date: 20140414
  Serious: No
  Sender: FDA-Public Use
  Company Number: US-B.I. PHARMACEUTICALS,INC./RIDGEFIELD-2013-BI-13528BP

PATIENT
  Age: 62 Year
  Sex: Female

DRUGS (2)
  1. TRADJENTA [Suspect]
     Route: 048
  2. METFORMIN [Concomitant]
     Route: 048

REACTIONS (2)
  - Increased appetite [Unknown]
  - Glycosylated haemoglobin increased [Unknown]
